FAERS Safety Report 5396778-3 (Version None)
Quarter: 2007Q3

REPORT INFORMATION
  Report Type: 
  Country: None (occurrence: None)
  Receive Date: 20070725
  Receipt Date: 20070717
  Transmission Date: 20080115
  Serious: Yes (Hospitalization)
  Sender: FDA-Public Use
  Company Number: DE-ROCHE-475611

PATIENT
  Age: 36 Year
  Sex: Female
  Weight: 74.8 kg

DRUGS (10)
  1. VALGANCICLOVIR HCL [Suspect]
     Route: 048
     Dates: start: 20060826, end: 20060830
  2. VALGANCICLOVIR HCL [Suspect]
     Route: 048
     Dates: end: 20061117
  3. PREDNISONE [Concomitant]
  4. SANDIMMUNE [Concomitant]
  5. CELLCEPT [Concomitant]
     Dosage: DOSE FREQUENCY REPORTED AS 500 2X2
  6. METOPROLOL SUCCINATE [Concomitant]
  7. RAMIPRIL [Concomitant]
  8. PANTOPRAZOLE SODIUM [Concomitant]
  9. AMPHO MORONAL [Concomitant]
  10. 1 CONCOMITANT DRUG [Concomitant]
     Dosage: DRUG NAME REPORTED AS: PIEVAU
     Dates: start: 20070122

REACTIONS (3)
  - PNEUMONIA [None]
  - PYREXIA [None]
  - URINARY TRACT INFECTION [None]
